FAERS Safety Report 6550232-1 (Version None)
Quarter: 2010Q1

REPORT INFORMATION
  Report Type: 
  Country: None (occurrence: None)
  Receive Date: 20100125
  Receipt Date: 20100120
  Transmission Date: 20100710
  Serious: Yes (Hospitalization)
  Sender: FDA-Public Use
  Company Number: GXKR2010DE00966

PATIENT
  Age: 74 Year
  Sex: Female
  Weight: 82 kg

DRUGS (7)
  1. RAMIPRIL [Suspect]
     Indication: HYPERTENSION
     Dosage: 1 DF, QD
     Route: 048
  2. ACETYLSALICYLIC ACID SRT [Suspect]
     Indication: CORONARY ARTERY DISEASE
     Dosage: 100 MG, QD
     Route: 048
     Dates: start: 19980101
  3. BISOPROLOL (NGX) [Suspect]
     Indication: HYPERTENSION
     Dosage: 5 MG, QD
     Route: 048
  4. ZOPICLONE [Concomitant]
  5. SIMVASTATIN [Concomitant]
  6. TREVILOR - SLOW RELEASE [Suspect]
     Indication: DEPRESSION
     Dosage: UNK
     Dates: start: 20090201
  7. SEROQUEL [Suspect]
     Indication: SCHIZOPHRENIA
     Dosage: 50 MG, BID
     Route: 048
     Dates: start: 20090201

REACTIONS (2)
  - HEPATIC ENZYME INCREASED [None]
  - HYPERGLYCAEMIA [None]
